FAERS Safety Report 24028766 (Version 1)
Quarter: 2024Q2

REPORT INFORMATION
  Report Type: Spontaneous
  Country: US (occurrence: US)
  Receive Date: 20240628
  Receipt Date: 20240628
  Transmission Date: 20240716
  Serious: No
  Sender: FDA-Public Use
  Company Number: US-PharmaLex US Corporation-2158634

PATIENT
  Age: 72 Year
  Sex: Female

DRUGS (4)
  1. CYTALUX [Suspect]
     Active Substance: PAFOLACIANINE SODIUM
     Indication: Nodule
     Dates: start: 20240617, end: 20240617
  2. BENADRYL [Concomitant]
     Active Substance: DIPHENHYDRAMINE HYDROCHLORIDE
     Dates: start: 20240617
  3. CELEBREX [Concomitant]
     Active Substance: CELECOXIB
  4. ZOFRAN [Concomitant]
     Active Substance: ONDANSETRON HYDROCHLORIDE
     Dates: start: 20240617

REACTIONS (5)
  - Nausea [Unknown]
  - Hyperhidrosis [Unknown]
  - Wheezing [Unknown]
  - Chest discomfort [Unknown]
  - Chest discomfort [Unknown]
